FAERS Safety Report 11143848 (Version 1)
Quarter: 2015Q2

REPORT INFORMATION
  Report Type: Spontaneous
  Country: FR (occurrence: FR)
  Receive Date: 20150528
  Receipt Date: 20150528
  Transmission Date: 20150821
  Serious: Yes (Hospitalization)
  Sender: FDA-Public Use
  Company Number: FR-009507513-1505FRA007527

PATIENT
  Age: 77 Year
  Sex: Male

DRUGS (5)
  1. ONCOTICE [Suspect]
     Active Substance: BACILLUS CALMETTE-GUERIN SUBSTRAIN TICE LIVE ANTIGEN
     Dosage: UNKNOWN
     Route: 043
     Dates: start: 201408, end: 201412
  2. KARDEGIC [Concomitant]
     Active Substance: ASPIRIN LYSINE
     Dosage: 75 MG, QD
  3. ATARAX [Concomitant]
     Active Substance: HYDROXYZINE\HYDROXYZINE HYDROCHLORIDE
     Dosage: 25 MG, QD
  4. AMIODARONE [Concomitant]
     Active Substance: AMIODARONE
     Dosage: 200 MG, QD
  5. SELOKEN [Concomitant]
     Active Substance: METOPROLOL
     Dosage: 100 MG, QD

REACTIONS (2)
  - Intervertebral discitis [Recovering/Resolving]
  - Cystitis noninfective [Recovering/Resolving]

NARRATIVE: CASE EVENT DATE: 201412
